FAERS Safety Report 7903603-2 (Version None)
Quarter: 2011Q4

REPORT INFORMATION
  Report Type: 
  Country: None (occurrence: None)
  Receive Date: 20111107
  Receipt Date: 20111020
  Transmission Date: 20120403
  Serious: Yes (Other)
  Sender: FDA-Public Use
  Company Number: 1088767

PATIENT
  Age: 15 Month
  Sex: Male

DRUGS (8)
  1. ETOPOSIDE [Suspect]
     Indication: BRAIN NEOPLASM MALIGNANT
     Dosage: 2.5 MG/KG
  2. CARBOPLATIN [Suspect]
     Indication: BRAIN NEOPLASM MALIGNANT
     Dosage: 17 MG/KG/DAY
  3. METHOTREXATE [Suspect]
     Indication: BRAIN NEOPLASM MALIGNANT
     Dosage: 8 GM/M^2
  4. CYCLOPHOSPHAMIDE [Suspect]
     Indication: BRAIN NEOPLASM MALIGNANT
     Dosage: 60 MG/KG
  5. (THERAPEUTIC RADIOPHARMACEUTICALS) [Suspect]
     Indication: BRAIN NEOPLASM MALIGNANT
  6. DEXAMETHASONE SODIUM PHOSPHATE [Suspect]
     Indication: BRAIN NEOPLASM MALIGNANT
     Dosage: 0.05 MG/KG
  7. CISPLATIN [Suspect]
     Indication: BRAIN NEOPLASM MALIGNANT
     Dosage: 3.5 MG/KG
  8. THIOTEPA [Suspect]
     Indication: BRAIN NEOPLASM MALIGNANT
     Dosage: 10 MG/KG/DAY

REACTIONS (3)
  - LEUKOENCEPHALOPATHY [None]
  - DYSPHAGIA [None]
  - ASPIRATION [None]
